FAERS Safety Report 6239888-0 (Version None)
Quarter: 2009Q2

REPORT INFORMATION
  Report Type: 
  Country: None (occurrence: None)
  Receive Date: 20090623
  Receipt Date: 20090617
  Transmission Date: 20091009
  Serious: Yes (Death)
  Sender: FDA-Public Use
  Company Number: IT-ELI_LILLY_AND_COMPANY-IT200906004034

PATIENT
  Age: 40 Year

DRUGS (3)
  1. GEMZAR [Suspect]
     Indication: NON-SMALL CELL LUNG CANCER METASTATIC
     Dosage: 1000 MG/M2, EVERY 15 DAYS
  2. DOCETAXEL [Concomitant]
     Indication: NON-SMALL CELL LUNG CANCER METASTATIC
     Dosage: 75 MG/M2,  EVERY 15 DAYS
  3. ALDESLEUKIN [Concomitant]
     Dosage: 0.5 MIU, 2/D
     Route: 058

REACTIONS (1)
  - PULMONARY EMBOLISM [None]
